FAERS Safety Report 8439461-X (Version None)
Quarter: 2012Q2

REPORT INFORMATION
  Report Type: 
  Country: None (occurrence: None)
  Receive Date: 20120607
  Receipt Date: 20120529
  Transmission Date: 20120825
  Serious: Yes (Hospitalization)
  Sender: FDA-Public Use
  Company Number: 2012SP029261

PATIENT
  Age: 65 Year
  Sex: Male
  Weight: 68.6 kg

DRUGS (4)
  1. VICTRELIS [Suspect]
     Indication: HEPATITIS C
     Dosage: 600 MG;QD
     Dates: start: 20110914, end: 20120226
  2. VIRAFERONPEG [Suspect]
     Indication: HEPATITIS C
     Dosage: 80 MCG;QW
     Dates: start: 20110913, end: 20120226
  3. NEORECORMON [Concomitant]
  4. RIBAVIRIN [Suspect]
     Indication: HEPATITIS C
     Dosage: 400 MG;QD
     Dates: start: 20110914, end: 20120226

REACTIONS (5)
  - HEPATIC CIRRHOSIS [None]
  - ERYTHROSIS [None]
  - HAEMANGIOMA [None]
  - HEPATOCELLULAR INJURY [None]
  - PORTAL HYPERTENSION [None]
